FAERS Safety Report 14199499 (Version 1)
Quarter: 2017Q4

REPORT INFORMATION
  Report Type: Spontaneous
  Country: US (occurrence: US)
  Receive Date: 20171117
  Receipt Date: 20171117
  Transmission Date: 20180321
  Serious: No
  Sender: FDA-Public Use
  Company Number: US-GLAXOSMITHKLINE-US2017172316

PATIENT
  Sex: Female

DRUGS (1)
  1. TARGET NTS CLEAR 21 MG TRANSDERMAL PATCH [Suspect]
     Active Substance: NICOTINE
     Indication: SMOKING CESSATION THERAPY
     Dosage: 21 MG, UNK
     Dates: start: 20171107, end: 20171108

REACTIONS (4)
  - Application site erythema [Unknown]
  - Burning sensation [Unknown]
  - Application site pain [Unknown]
  - Application site reaction [Unknown]

NARRATIVE: CASE EVENT DATE: 20171107
